FAERS Safety Report 8212542-1 (Version None)
Quarter: 2012Q1

REPORT INFORMATION
  Report Type: 
  Country: None (occurrence: None)
  Receive Date: 20120315
  Receipt Date: 20120313
  Transmission Date: 20120608
  Serious: Yes (Hospitalization)
  Sender: FDA-Public Use
  Company Number: IT-BAYER-2011-112802

PATIENT
  Age: 77 Year
  Sex: Female

DRUGS (9)
  1. METFORMIN HCL [Concomitant]
  2. LOSARTAN POTASSIUM [Suspect]
     Dosage: DAILY DOSE 50 MG
     Dates: start: 20110804, end: 20111104
  3. POTASSIUM CHLORIDE [Suspect]
     Indication: HYPERTENSION
     Dosage: DAILY DOSE 50 MG
     Route: 048
     Dates: start: 20110804, end: 20111104
  4. CITALOPRAM HYDROBROMIDE [Concomitant]
  5. SIMVASTATIN [Concomitant]
  6. RABEPRAZOLE SODIUM [Concomitant]
  7. ATENOLOL [Suspect]
     Dosage: UNK
     Dates: start: 20110804, end: 20111104
  8. FUROSEMIDE [Suspect]
     Dosage: UNK
     Dates: start: 20110804, end: 20111104
  9. ASPIRIN [Suspect]
     Indication: THROMBOSIS PROPHYLAXIS
     Dosage: 100 MG, QD
     Route: 048
     Dates: start: 20110804, end: 20111104

REACTIONS (3)
  - ABDOMINAL PAIN [None]
  - HYPERKALAEMIA [None]
  - RENAL FAILURE [None]
